FAERS Safety Report 6074848-4 (Version None)
Quarter: 2009Q1

REPORT INFORMATION
  Report Type: 
  Country: None (occurrence: None)
  Receive Date: 20090210
  Receipt Date: 20090210
  Transmission Date: 20090719
  Serious: Yes (Other)
  Sender: FDA-Public Use
  Company Number: None

PATIENT
  Age: 49 Year
  Sex: Female
  Weight: 122.4712 kg

DRUGS (2)
  1. LAMOTRIGINE [Suspect]
     Indication: BIPOLAR DISORDER
     Dosage: 25 MG, 50 MG 2 WEEKS EACH PO
     Route: 048
     Dates: start: 20090101, end: 20090120
  2. LAMOTRIGINE [Suspect]
     Dosage: 100MG DAILY

REACTIONS (8)
  - AMNESIA [None]
  - ARTHRALGIA [None]
  - ARTHRITIS [None]
  - CHEST PAIN [None]
  - DEPRESSION [None]
  - HEADACHE [None]
  - JOINT SWELLING [None]
  - MIGRAINE [None]
